FAERS Safety Report 4685022-8 (Version None)
Quarter: 2005Q2

REPORT INFORMATION
  Report Type: 
  Country: None (occurrence: None)
  Receive Date: 20050531
  Receipt Date: 20050223
  Transmission Date: 20051028
  Serious: No
  Sender: FDA-Public Use
  Company Number: WAES 0503USA01460

PATIENT
  Age: 56 Year
  Sex: Female

DRUGS (1)
  1. ZETIA [Suspect]
     Dosage: 10 MG/UNK/PO
     Route: 048

REACTIONS (2)
  - HYPOAESTHESIA [None]
  - MYALGIA [None]
